FAERS Safety Report 23409866 (Version 1)
Quarter: 2024Q1

REPORT INFORMATION
  Report Type: Report from Study
  Country: AT (occurrence: AT)
  Receive Date: 20240117
  Receipt Date: 20240117
  Transmission Date: 20240409
  Serious: Yes (Hospitalization, Other)
  Sender: FDA-Public Use
  Company Number: AT-PFM-2024-00155

PATIENT

DRUGS (9)
  1. NERATINIB [Suspect]
     Active Substance: NERATINIB
     Indication: Breast cancer
     Dosage: 200 MG DAILY
     Route: 048
     Dates: start: 20230122
  2. NERATINIB [Suspect]
     Active Substance: NERATINIB
     Dosage: UNK
     Route: 065
     Dates: start: 20231206
  3. LEVOTHYROXINE [Concomitant]
     Active Substance: LEVOTHYROXINE\LEVOTHYROXINE SODIUM
     Indication: Hypothyroidism
     Dosage: 125 UG, DAILY
     Route: 048
  4. MIRTAZAPINE [Concomitant]
     Active Substance: MIRTAZAPINE
     Indication: Depression
     Dosage: 30 MG, DAILY
     Route: 048
     Dates: start: 202104
  5. ALPRAZOLAM [Concomitant]
     Active Substance: ALPRAZOLAM
     Indication: Depression
     Dosage: 0.25 MG, DAILY
     Route: 048
     Dates: start: 202104
  6. LOPERAMIDE [Concomitant]
     Active Substance: LOPERAMIDE
     Indication: Prophylaxis against diarrhoea
     Dosage: 2 MG, PRN
     Route: 048
     Dates: start: 20230120, end: 20230217
  7. LOPERAMIDE [Concomitant]
     Active Substance: LOPERAMIDE
     Dosage: 2 MG, PRN
     Route: 048
     Dates: start: 202303
  8. EXEMESTANE [Concomitant]
     Active Substance: EXEMESTANE
     Indication: Breast cancer
     Dosage: UNK
     Route: 065
     Dates: start: 20211221
  9. GOSERELIN [Concomitant]
     Active Substance: GOSERELIN
     Indication: Breast cancer
     Dosage: UNK
     Route: 065
     Dates: start: 20221021

REACTIONS (3)
  - Wound complication [Recovered/Resolved]
  - Prescribed underdose [Unknown]
  - Off label use [Unknown]

NARRATIVE: CASE EVENT DATE: 20230122
